FAERS Safety Report 7621132-0 (Version None)
Quarter: 2011Q3

REPORT INFORMATION
  Report Type: 
  Country: None (occurrence: None)
  Receive Date: 20110719
  Receipt Date: 20110623
  Transmission Date: 20111222
  Serious: No
  Sender: FDA-Public Use
  Company Number: US-B.I. PHARMACEUTICALS,INC./RIDGEFIELD-2011-BP-14717BP

PATIENT
  Sex: Male

DRUGS (21)
  1. CARVEDILOL [Concomitant]
     Dosage: 50 MG
  2. PROBIOTIC [Concomitant]
  3. ALAVERT [Concomitant]
  4. FLOMAX [Concomitant]
  5. DETROL LA [Concomitant]
     Dates: start: 20100601
  6. SPIRIVA [Suspect]
     Indication: CHRONIC OBSTRUCTIVE PULMONARY DISEASE
     Dosage: 18 MCG
     Route: 055
     Dates: start: 20110525
  7. PROSCAR [Concomitant]
     Dosage: 5 MG
  8. CRESTOR [Concomitant]
     Dosage: 20 MG
  9. MULTI-VITAMINS [Concomitant]
  10. LOVAZA [Concomitant]
     Indication: EPISTAXIS
     Dosage: 4000 MG
  11. DIOVAN HCT [Concomitant]
  12. ASPIRIN [Concomitant]
  13. OSTEO BIFLEX [Concomitant]
  14. TYLENOL-500 [Concomitant]
     Indication: PAIN
  15. FLUOCINONIDE [Concomitant]
  16. NASONEX [Concomitant]
     Dates: start: 20110119
  17. PLAVIX [Concomitant]
  18. OSCAL [Concomitant]
  19. SUPER B-COMPLEX [Concomitant]
  20. BIOTIN [Concomitant]
     Indication: DRY SKIN
  21. MAGNESIUM [Concomitant]

REACTIONS (1)
  - ENERGY INCREASED [None]
